FAERS Safety Report 5812534-3 (Version None)
Quarter: 2008Q3

REPORT INFORMATION
  Report Type: 
  Country: None (occurrence: None)
  Receive Date: 20080714
  Receipt Date: 20080714
  Transmission Date: 20090109
  Serious: Yes (Disabling)
  Sender: FDA-Public Use
  Company Number: None

PATIENT
  Age: 4 Year
  Sex: Male
  Weight: 14.9687 kg

DRUGS (1)
  1. SINGULAIR [Suspect]
     Indication: MULTIPLE ALLERGIES
     Dosage: 1 PER DAY PO
     Route: 048
     Dates: start: 20060407, end: 20070329

REACTIONS (3)
  - AGGRESSION [None]
  - MOOD SWINGS [None]
  - PERSONALITY CHANGE [None]
